FAERS Safety Report 9555966 (Version 5)
Quarter: 2019Q3

REPORT INFORMATION
  Report Type: Spontaneous
  Country: CO (occurrence: CO)
  Receive Date: 20130926
  Receipt Date: 20190819
  Transmission Date: 20191005
  Serious: Yes (Other)
  Sender: FDA-Public Use
  Company Number: CO-AMGEN-COLSP2013067375

PATIENT
  Age: 66 Year
  Sex: Female

DRUGS (8)
  1. ENBREL [Suspect]
     Active Substance: ETANERCEPT
     Indication: RHEUMATOID ARTHRITIS
     Dosage: 50 MG, WEEKLY
     Route: 058
     Dates: start: 2008
  2. ENBREL [Suspect]
     Active Substance: ETANERCEPT
     Dosage: 50 MG, WEEKLY (EVERY 8 DAYS)
     Route: 058
     Dates: start: 201904
  3. ENBREL [Suspect]
     Active Substance: ETANERCEPT
     Dosage: 50 MG, EVERY 2 WEEKS (15 DAYS)
     Route: 058
     Dates: start: 201901, end: 201904
  4. CALTRATE PLUS M [Concomitant]
     Indication: RHEUMATOID ARTHRITIS
     Dosage: UNK, 1X/DAY
     Route: 048
     Dates: start: 2003
  5. NIMESULIDE [Concomitant]
     Active Substance: NIMESULIDE
     Indication: RHEUMATOID ARTHRITIS
     Dosage: 15 MG, 1X/DAY
     Route: 048
     Dates: start: 2009
  6. BETALOC ZOK [Concomitant]
     Active Substance: METOPROLOL SUCCINATE
     Dosage: 50 MILLIGRAM, QD
     Route: 048
     Dates: start: 201306
  7. CALTRATE PLUS IRON AND VITAMIN D [Concomitant]
     Indication: RHEUMATOID ARTHRITIS
     Dosage: UNK, QD
     Route: 048
     Dates: start: 2003
  8. GIRALMET [Concomitant]
     Indication: RHEUMATOID ARTHRITIS
     Dosage: 1000 MG, 1X/DAY
     Dates: start: 2012

REACTIONS (7)
  - Musculoskeletal pain [Unknown]
  - Off label use [Unknown]
  - Injection site erythema [Unknown]
  - Diabetes mellitus [Not Recovered/Not Resolved]
  - Pain in extremity [Unknown]
  - Injection site urticaria [Unknown]
  - Hypothyroidism [Not Recovered/Not Resolved]

NARRATIVE: CASE EVENT DATE: 2011
